FAERS Safety Report 6861251 (Version 3)
Quarter: 2013Q2

REPORT INFORMATION
  Report Type: Spontaneous
  Country: US (occurrence: US)
  Receive Date: 20081219
  Receipt Date: 20130423
  Transmission Date: 20140414
  Serious: Yes (Hospitalization)
  Sender: FDA-Public Use
  Company Number: US-BIOGENIDEC-2008BI033531

PATIENT
  Age: 48 Year
  Sex: Male

DRUGS (8)
  1. TYSABRI [Suspect]
     Indication: MULTIPLE SCLEROSIS
     Route: 042
     Dates: start: 20080618, end: 20081022
  2. BACLOFEN [Concomitant]
  3. AMBIEN [Concomitant]
  4. COLACE [Concomitant]
  5. MIRALAX [Concomitant]
  6. PRILOSEC [Concomitant]
  7. TYLENOL [Concomitant]
  8. LOVENOX [Concomitant]

REACTIONS (7)
  - Urosepsis [Recovered/Resolved]
  - White blood cell count increased [Recovered/Resolved]
  - Muscular weakness [Unknown]
  - Activities of daily living impaired [Unknown]
  - Blepharospasm [Unknown]
  - Fatigue [Unknown]
  - Mobility decreased [Unknown]
